FAERS Safety Report 11990139 (Version 1)
Quarter: 2016Q1

REPORT INFORMATION
  Report Type: Spontaneous
  Country: US (occurrence: US)
  Receive Date: 20160202
  Receipt Date: 20160202
  Transmission Date: 20160526
  Serious: No
  Sender: FDA-Public Use
  Company Number: US-ROCHE-1602860

PATIENT
  Sex: Male
  Weight: 59.02 kg

DRUGS (3)
  1. NUTROPIN AQ [Suspect]
     Active Substance: SOMATROPIN
     Indication: HYPOPITUITARISM
  2. NUTROPIN AQ [Suspect]
     Active Substance: SOMATROPIN
     Indication: BRAIN NEOPLASM MALIGNANT
     Dosage: 20MG/2ML
     Route: 058
  3. NUTROPIN AQ [Suspect]
     Active Substance: SOMATROPIN
     Indication: VON WILLEBRAND^S DISEASE

REACTIONS (1)
  - Drug dose omission [Unknown]
